FAERS Safety Report 9334533 (Version 1)
Quarter: 2013Q2

REPORT INFORMATION
  Report Type: Spontaneous
  Country: GB (occurrence: GB)
  Receive Date: 20130606
  Receipt Date: 20130606
  Transmission Date: 20140414
  Serious: Yes (Other)
  Sender: FDA-Public Use
  Company Number: GB-TEVA-410261ISR

PATIENT
  Sex: 0

DRUGS (3)
  1. VALPROIC ACID [Suspect]
     Indication: CONVULSION
  2. MOVICOL [Interacting]
     Dosage: 1 SACHET
  3. CLOBAZAM [Interacting]
     Indication: CONVULSION

REACTIONS (2)
  - Epilepsy [Recovered/Resolved]
  - Drug interaction [Recovered/Resolved]
